FAERS Safety Report 7074064-3 (Version None)
Quarter: 2010Q4

REPORT INFORMATION
  Report Type: 
  Country: None (occurrence: None)
  Receive Date: 20101029
  Receipt Date: 20101019
  Transmission Date: 20110411
  Serious: No
  Sender: FDA-Public Use
  Company Number: US-ROCHE-729912

PATIENT
  Sex: Female

DRUGS (5)
  1. HERCEPTIN [Suspect]
     Dosage: EARLY 2007
     Route: 065
     Dates: start: 20070101
  2. HERCEPTIN [Suspect]
     Route: 065
     Dates: start: 20100917
  3. LAPATINIB [Suspect]
     Route: 065
  4. XELODA [Concomitant]
     Route: 065
  5. ZOMETA [Concomitant]

REACTIONS (1)
  - TRANSAMINASES INCREASED [None]
